FAERS Safety Report 8314875-7 (Version None)
Quarter: 2012Q2

REPORT INFORMATION
  Report Type: 
  Country: None (occurrence: None)
  Receive Date: 20120426
  Receipt Date: 20110808
  Transmission Date: 20120825
  Serious: Yes (Other)
  Sender: FDA-Public Use
  Company Number: US-TEVA-US025293

PATIENT
  Sex: Male
  Weight: 81.72 kg

DRUGS (4)
  1. PROVIGIL [Suspect]
     Indication: FATIGUE
     Dosage: 100 MILLIGRAM;
     Route: 048
     Dates: start: 20081201, end: 20081201
  2. PLAVIX [Concomitant]
     Route: 048
  3. PROVIGIL [Suspect]
     Dosage: 200 MILLIGRAM; QAM
     Route: 048
     Dates: start: 20081201
  4. ZESTRIL [Concomitant]
     Route: 048

REACTIONS (2)
  - CONFUSIONAL STATE [None]
  - HALLUCINATION [None]
